FAERS Safety Report 20368673 (Version 2)
Quarter: 2022Q1

REPORT INFORMATION
  Report Type: Spontaneous
  Country: DE (occurrence: DE)
  Receive Date: 20220124
  Receipt Date: 20220307
  Transmission Date: 20220423
  Serious: Yes (Hospitalization, Other)
  Sender: FDA-Public Use
  Company Number: DE-NOVARTISPH-NVSC2022DE009800

PATIENT
  Age: 60 Year
  Sex: Female
  Weight: 71 kg

DRUGS (7)
  1. CYCLOPHOSPHAMIDE [Suspect]
     Active Substance: CYCLOPHOSPHAMIDE
     Indication: Breast cancer
     Dosage: 600 MG/M2
     Route: 042
     Dates: start: 20210217, end: 20210331
  2. DOXORUBICIN [Suspect]
     Active Substance: DOXORUBICIN
     Indication: Breast cancer
     Dosage: 60 MG/M2
     Route: 042
     Dates: start: 20210217, end: 20210331
  3. PACLITAXEL [Suspect]
     Active Substance: PACLITAXEL
     Indication: Breast cancer
     Dosage: 90 MG/M2 (FROM 22 APR 2021)
     Route: 042
     Dates: end: 20210615
  4. CARBOPLATIN [Suspect]
     Active Substance: CARBOPLATIN
     Indication: Breast cancer
     Dosage: UNK (FROM 22 APR 2021, 2 AREA UNDER CU-RVE)
     Route: 042
     Dates: end: 20210615
  5. TRASTUZUMAB [Suspect]
     Active Substance: TRASTUZUMAB
     Indication: Breast cancer
     Dosage: 588 MG
     Route: 041
     Dates: start: 20210421
  6. ATEZOLIZUMAB [Suspect]
     Active Substance: ATEZOLIZUMAB
     Indication: Breast cancer
     Dosage: 1200 MG (LAST DOSE BEFORE SAE 03/DEC/2021)
     Route: 041
     Dates: start: 20210217, end: 20211203
  7. PERTUZUMAB [Suspect]
     Active Substance: PERTUZUMAB
     Indication: Breast cancer
     Dosage: LAST DOSE BEFORE SAE 03/DEC/2021
     Route: 042
     Dates: start: 20210421, end: 20211203

REACTIONS (2)
  - Hypersensitivity [Recovered/Resolved]
  - Pneumonitis [Recovered/Resolved]

NARRATIVE: CASE EVENT DATE: 20210421
